FAERS Safety Report 6026396-5 (Version None)
Quarter: 2009Q1

REPORT INFORMATION
  Report Type: 
  Country: None (occurrence: None)
  Receive Date: 20090102
  Receipt Date: 20081231
  Transmission Date: 20090719
  Serious: Yes (Death, Hospitalization)
  Sender: FDA-Public Use
  Company Number: PHBS2008CN06725

PATIENT
  Age: 15 Year
  Sex: Male

DRUGS (4)
  1. CYCLOSPORINE [Suspect]
     Indication: APLASTIC ANAEMIA
     Dosage: 5 MG/KG/DAY
  2. ATGAM [Suspect]
     Indication: APLASTIC ANAEMIA
     Dosage: 5 MG/KG/DAY
  3. METHYLPREDNISOLONE 16MG TAB [Suspect]
     Indication: APLASTIC ANAEMIA
  4. PREDNISONE [Suspect]
     Indication: APLASTIC ANAEMIA

REACTIONS (6)
  - DRUG INEFFECTIVE [None]
  - GASTROINTESTINAL NECROSIS [None]
  - INTESTINAL RESECTION [None]
  - INTUSSUSCEPTION [None]
  - LUNG INFECTION [None]
  - NON-HODGKIN'S LYMPHOMA [None]
